FAERS Safety Report 9250979 (Version 3)
Quarter: 2013Q3

REPORT INFORMATION
  Report Type: Spontaneous
  Country: GT (occurrence: TT)
  Receive Date: 20130424
  Receipt Date: 20130830
  Transmission Date: 20140515
  Serious: Yes (Other)
  Sender: FDA-Public Use
  Company Number: PHHY2013TT039992

PATIENT
  Age: 65 Year
  Sex: Female

DRUGS (7)
  1. TASIGNA [Suspect]
     Indication: CHRONIC MYELOID LEUKAEMIA
     Dosage: 300 MG, BID
     Route: 048
  2. PLAVIX [Concomitant]
     Dosage: 75 MG, QD
  3. CRESTOR [Concomitant]
     Dosage: 20 MG, QD
  4. COVERA [Concomitant]
     Dosage: 10 MG, QD
  5. ATENOLOL [Concomitant]
     Dosage: 25 MG, QD
  6. GASTRO [Concomitant]
     Dosage: 30 MG, QD
  7. ASPIRIN [Concomitant]
     Dosage: 75 MG, QD

REACTIONS (1)
  - Myocardial infarction [Recovering/Resolving]
